FAERS Safety Report 17768566 (Version 2)
Quarter: 2020Q2

REPORT INFORMATION
  Report Type: Spontaneous
  Country: US (occurrence: US)
  Receive Date: 20200512
  Receipt Date: 20200609
  Transmission Date: 20200714
  Serious: Yes (Other)
  Sender: FDA-Public Use
  Company Number: US-SUN PHARMACEUTICAL INDUSTRIES LTD-2020R1-246142

PATIENT

DRUGS (2)
  1. ABSORICA [Suspect]
     Active Substance: ISOTRETINOIN
     Indication: PRODUCT USED FOR UNKNOWN INDICATION
     Dosage: 40 MG
     Route: 065
  2. ABSORICA [Suspect]
     Active Substance: ISOTRETINOIN
     Dosage: 80 MG
     Route: 065

REACTIONS (10)
  - Abdominal discomfort [Unknown]
  - Paraesthesia [Unknown]
  - Mental disorder [Unknown]
  - Product administration interrupted [Unknown]
  - Malaise [Unknown]
  - Headache [Unknown]
  - Back pain [Unknown]
  - Fatigue [Unknown]
  - Depression [Unknown]
  - Anxiety [Unknown]
